FAERS Safety Report 8750248 (Version 2)
Quarter: 2012Q4

REPORT INFORMATION
  Report Type: Spontaneous
  Country: GB (occurrence: None)
  Receive Date: 20120806
  Receipt Date: 20121024
  Transmission Date: 20130627
  Serious: Yes (Hospitalization, Other)
  Sender: FDA-Public Use
  Company Number: AUR-APL-2012-03261

PATIENT
  Age: 21 Year
  Sex: Female
  Weight: 100 kg

DRUGS (3)
  1. LAMOTRIGINE [Suspect]
     Indication: PRODUCT USED FOR UNKNOWN INDICATION
     Dosage: SEE IMAGE
     Route: 067
  2. LAMOTRIGINE [Suspect]
     Indication: EPILEPSY
     Dosage: SEE IMAGE
     Route: 067
  3. FOLIC ACID [Concomitant]

REACTIONS (3)
  - Convulsion [None]
  - Maternal exposure during pregnancy [None]
  - Maternal exposure before pregnancy [None]
